FAERS Safety Report 12182752 (Version 13)
Quarter: 2021Q4

REPORT INFORMATION
  Report Type: Spontaneous
  Country: US (occurrence: US)
  Receive Date: 20160316
  Receipt Date: 20211213
  Transmission Date: 20220303
  Serious: Yes (Other)
  Sender: FDA-Public Use
  Company Number: US-PFIZER INC-2016131404

PATIENT
  Age: 73 Year
  Sex: Female

DRUGS (5)
  1. LYRICA [Suspect]
     Active Substance: PREGABALIN
     Indication: Neuralgia
     Dosage: 25 MG, FOUR TIMES DAY
     Dates: start: 2013
  2. LYRICA [Suspect]
     Active Substance: PREGABALIN
     Indication: Neuropathy peripheral
     Dosage: 25 MG, FIVE TIMES A DAY
     Route: 048
  3. LYRICA [Suspect]
     Active Substance: PREGABALIN
     Indication: Small fibre neuropathy
     Dosage: 50 MG (2 CAPSULES OF 25 MG), THREE TIMES A DAY (CAN TAKE EXTRA DOSE AS NEEDED MUST BE 25 MG CAPSULE)
     Route: 048
  4. LYRICA [Suspect]
     Active Substance: PREGABALIN
     Indication: Polyneuropathy
     Dosage: 50 MG, THREE TIMES A DAY (2 CAPSULES THREE TIMES A DAY, AND TOOK EXTRA DOSE AS NEEDED)
  5. LYRICA [Suspect]
     Active Substance: PREGABALIN
     Indication: Occipital neuralgia
     Dosage: 125 MG, DAILY (2 CAPSULES IN THE MORNING, 2 CAPSULES AT NOON, 1 CAPSULE QHS-NIGHT)
     Route: 048

REACTIONS (2)
  - Choking [Unknown]
  - Compression fracture [Unknown]

NARRATIVE: CASE EVENT DATE: 20160101
